FAERS Safety Report 5155093-3 (Version None)
Quarter: 2006Q4

REPORT INFORMATION
  Report Type: 
  Country: None (occurrence: None)
  Receive Date: 20061121
  Receipt Date: 20061115
  Transmission Date: 20070319
  Serious: Yes (Hospitalization)
  Sender: FDA-Public Use
  Company Number: GB-GLAXOSMITHKLINE-B0447179A

PATIENT
  Age: 53 Year
  Sex: Female
  Weight: 55 kg

DRUGS (4)
  1. ONDANSETRON [Suspect]
     Indication: NAUSEA
     Route: 042
     Dates: start: 20060715, end: 20060715
  2. ACETAMINOPHEN [Concomitant]
  3. PROPOFOL [Concomitant]
     Route: 042
  4. REMIFENTANIL [Concomitant]

REACTIONS (3)
  - CHOREA [None]
  - DISORIENTATION [None]
  - LOCKED-IN SYNDROME [None]
